FAERS Safety Report 10287446 (Version 1)
Quarter: 2014Q3

REPORT INFORMATION
  Report Type: Spontaneous
  Country: CA (occurrence: CA)
  Receive Date: 20140709
  Receipt Date: 20140709
  Transmission Date: 20150326
  Serious: Yes (Other)
  Sender: FDA-Public Use
  Company Number: CA-GLAXOSMITHKLINE-A1079912A

PATIENT
  Age: 87 Year
  Sex: Female
  Weight: 50 kg

DRUGS (2)
  1. HEART MEDICATION [Concomitant]
     Active Substance: UNSPECIFIED INGREDIENT
  2. ADVAIR HFA [Suspect]
     Active Substance: FLUTICASONE PROPIONATE\SALMETEROL XINAFOATE
     Indication: CHRONIC OBSTRUCTIVE PULMONARY DISEASE
     Dosage: 1PUFF TWICE PER DAY
     Route: 055
     Dates: start: 1998

REACTIONS (4)
  - Oral pain [Not Recovered/Not Resolved]
  - Cardiac operation [Unknown]
  - Stent placement [Unknown]
  - Off label use [Unknown]

NARRATIVE: CASE EVENT DATE: 20120214
